FAERS Safety Report 8292313-0 (Version None)
Quarter: 2012Q2

REPORT INFORMATION
  Report Type: 
  Country: None (occurrence: None)
  Receive Date: 20120417
  Receipt Date: 20120405
  Transmission Date: 20120825
  Serious: Yes (Hospitalization)
  Sender: FDA-Public Use
  Company Number: JP-FRI-1000026137

PATIENT
  Age: 87 Year
  Sex: Female

DRUGS (7)
  1. MEMANTINE HCL [Suspect]
     Indication: DEMENTIA ALZHEIMER'S TYPE
     Dosage: 5 MG
     Route: 048
     Dates: start: 20111019, end: 20111118
  2. CEONOMAL [Concomitant]
     Dosage: 10 MG
  3. KARY UNI [Concomitant]
  4. MEMANTINE HCL [Suspect]
     Dosage: 20 MG
     Route: 048
     Dates: start: 20111119, end: 20111121
  5. NIFEDIPINE [Concomitant]
     Dosage: 20 MG
  6. CIMETIPARL [Concomitant]
     Dosage: 200 MG
  7. LENIMEC [Concomitant]

REACTIONS (16)
  - RESTLESSNESS [None]
  - AMIMIA [None]
  - ELEVATED MOOD [None]
  - LISTLESS [None]
  - MUTISM [None]
  - SEDATION [None]
  - DIZZINESS [None]
  - BRADYPHRENIA [None]
  - DEPRESSED LEVEL OF CONSCIOUSNESS [None]
  - SOMNOLENCE [None]
  - DECREASED ACTIVITY [None]
  - HYPERSOMNIA [None]
  - HALLUCINATION, VISUAL [None]
  - ALTERED STATE OF CONSCIOUSNESS [None]
  - ABULIA [None]
  - CONFUSIONAL STATE [None]
